FAERS Safety Report 4736398-4 (Version None)
Quarter: 2005Q3

REPORT INFORMATION
  Report Type: 
  Country: None (occurrence: None)
  Receive Date: 20050808
  Receipt Date: 20050726
  Transmission Date: 20060218
  Serious: Yes (Hospitalization)
  Sender: FDA-Public Use
  Company Number: JP-BRISTOL-MYERS SQUIBB COMPANY-13052527

PATIENT
  Age: 49 Year
  Sex: Male

DRUGS (2)
  1. BRIPLATIN [Suspect]
     Indication: NASOPHARYNGEAL CANCER
     Route: 042
  2. RADIOTHERAPY [Concomitant]
     Indication: NASOPHARYNGEAL CANCER

REACTIONS (7)
  - ANAEMIA [None]
  - DERMATITIS [None]
  - DYSPHAGIA [None]
  - LEUKOPENIA [None]
  - PHARYNGITIS [None]
  - THROMBOCYTOPENIA [None]
  - WEIGHT DECREASED [None]
